FAERS Safety Report 9384251 (Version 1)
Quarter: 2013Q3

REPORT INFORMATION
  Report Type: Spontaneous
  Country: US (occurrence: None)
  Receive Date: 20130702
  Receipt Date: 20130702
  Transmission Date: 20140515
  Serious: No
  Sender: FDA-Public Use
  Company Number: None

PATIENT
  Age: 86 Year
  Sex: Male
  Weight: 78.93 kg

DRUGS (11)
  1. XARELTO [Suspect]
     Indication: THROMBOSIS PROPHYLAXIS
     Route: 048
     Dates: start: 20130607, end: 20130613
  2. XARELTO [Suspect]
     Indication: KNEE OPERATION
     Route: 048
     Dates: start: 20130607, end: 20130613
  3. ASPIRIN [Concomitant]
  4. DILITIAZEM [Concomitant]
  5. VITAMIN D-3 [Concomitant]
  6. DONEPEZIL [Concomitant]
  7. METOPROLOL [Concomitant]
  8. LEVETIRACETAM [Concomitant]
  9. OXYBUTININ [Concomitant]
  10. PANTOPRAZOLE [Concomitant]
  11. TAMSULOSIN [Concomitant]

REACTIONS (1)
  - Upper gastrointestinal haemorrhage [None]
